FAERS Safety Report 6263537-9 (Version None)
Quarter: 2009Q3

REPORT INFORMATION
  Report Type: 
  Country: None (occurrence: None)
  Receive Date: 20090710
  Receipt Date: 20090413
  Transmission Date: 20100115
  Serious: No
  Sender: FDA-Public Use
  Company Number: A0778420A

PATIENT
  Age: 66 Year
  Sex: Male

DRUGS (3)
  1. TYKERB [Suspect]
     Indication: BREAST CANCER
     Dosage: 5TAB PER DAY
     Route: 048
     Dates: start: 20090201
  2. COUMADIN [Concomitant]
  3. M.V.I. [Concomitant]

REACTIONS (4)
  - ERYTHEMA [None]
  - PARAESTHESIA [None]
  - PRURITUS [None]
  - RASH [None]
